FAERS Safety Report 4489310-X (Version None)
Quarter: 2004Q4

REPORT INFORMATION
  Report Type: 
  Country: None (occurrence: None)
  Receive Date: 20041029
  Receipt Date: 20040510
  Transmission Date: 20050328
  Serious: Yes (Hospitalization, Other)
  Sender: FDA-Public Use
  Company Number: US-MERCK-0405USA00644

PATIENT
  Age: 74 Year
  Sex: Male
  Weight: 91 kg

DRUGS (3)
  1. VIOXX [Suspect]
     Indication: PAIN
     Route: 048
     Dates: start: 20001208
  2. COUMADIN [Concomitant]
     Route: 065
  3. CELEBREX [Concomitant]
     Route: 065

REACTIONS (13)
  - BENIGN PROSTATIC HYPERPLASIA [None]
  - CAROTID ARTERY STENOSIS [None]
  - CEREBRAL INFARCTION [None]
  - CEREBROVASCULAR ACCIDENT [None]
  - DRUG INEFFECTIVE [None]
  - HAEMORRHOIDS [None]
  - HEMIANOPIA [None]
  - HYPOAESTHESIA [None]
  - INJURY [None]
  - INTERNATIONAL NORMALISED RATIO INCREASED [None]
  - INTRACRANIAL ANEURYSM [None]
  - SUBARACHNOID HAEMORRHAGE [None]
  - URINARY RETENTION [None]
